FAERS Safety Report 7616710-9 (Version None)
Quarter: 2011Q3

REPORT INFORMATION
  Report Type: 
  Country: None (occurrence: None)
  Receive Date: 20110718
  Receipt Date: 20110708
  Transmission Date: 20111222
  Serious: Yes (Hospitalization)
  Sender: FDA-Public Use
  Company Number: ZW-BRISTOL-MYERS SQUIBB COMPANY-15894140

PATIENT
  Age: 52 Year
  Sex: Male
  Weight: 64 kg

DRUGS (3)
  1. STAVUDINE [Suspect]
     Indication: HIV INFECTION
     Dosage: DATE OF LAST DOSE: 30-JUN-2011.
     Route: 048
     Dates: start: 20090205
  2. EFAVIRENZ [Suspect]
     Indication: HIV INFECTION
     Dosage: DATE OF LAST DOSE: 29-JUN-2011.
     Route: 048
     Dates: start: 20081211
  3. LAMIVUDINE [Suspect]
     Indication: HIV INFECTION
     Dosage: DATE OF LAST DOSE: 30-JUN-2011.
     Route: 048
     Dates: start: 20081211

REACTIONS (1)
  - GYNAECOMASTIA [None]
